FAERS Safety Report 11976918 (Version 2)
Quarter: 2016Q1

REPORT INFORMATION
  Report Type: Spontaneous
  Country: FR (occurrence: FR)
  Receive Date: 20160129
  Receipt Date: 20160229
  Transmission Date: 20160526
  Serious: Yes (Death, Other)
  Sender: FDA-Public Use
  Company Number: FR-ALEXION PHARMACEUTICALS INC-A201600383

PATIENT
  Age: 18 Year
  Sex: Male

DRUGS (2)
  1. SOLIRIS [Suspect]
     Active Substance: ECULIZUMAB
     Indication: OFF LABEL USE
  2. SOLIRIS [Suspect]
     Active Substance: ECULIZUMAB
     Indication: SICKLE CELL ANAEMIA
     Dosage: 900 MG, QW
     Route: 042

REACTIONS (13)
  - Sickle cell anaemia with crisis [Unknown]
  - Pulmonary hypertension [Recovered/Resolved]
  - Haptoglobin increased [Unknown]
  - Hepatitis [Unknown]
  - Lung infection [Fatal]
  - Neutropenia [Unknown]
  - Cardiac disorder [Recovered/Resolved]
  - Acute hepatic failure [Recovering/Resolving]
  - Off label use [Unknown]
  - Cardiogenic shock [Unknown]
  - Bone marrow necrosis [Unknown]
  - Hypoxia [Unknown]
  - Haemorrhage [Unknown]
